FAERS Safety Report 19918200 (Version 1)
Quarter: 2021Q4

REPORT INFORMATION
  Report Type: Spontaneous
  Country: US (occurrence: US)
  Receive Date: 20211005
  Receipt Date: 20211005
  Transmission Date: 20220303
  Serious: Yes (unspecified)
  Sender: FDA-Public Use
  Company Number: None

PATIENT
  Age: 56 Year
  Sex: Male
  Weight: 150 kg

DRUGS (18)
  1. LITHIUM CARBONATE [Suspect]
     Active Substance: LITHIUM CARBONATE
     Indication: Graft versus host disease in gastrointestinal tract
     Dates: start: 20210917, end: 20211004
  2. LINEZOLID [Concomitant]
     Active Substance: LINEZOLID
  3. ZOSYN [Concomitant]
     Active Substance: PIPERACILLIN SODIUM\TAZOBACTAM SODIUM
  4. LOVENOX [Concomitant]
     Active Substance: ENOXAPARIN SODIUM
  5. INSULIN NOS [Concomitant]
     Active Substance: INSULIN NOS
  6. BUPROPION HYDROCHLORIDE [Concomitant]
     Active Substance: BUPROPION HYDROCHLORIDE
  7. METHYLPREDNISILONE [Concomitant]
  8. ECULIZUMAB [Concomitant]
     Active Substance: ECULIZUMAB
  9. METOPROLOL TARTRATE [Concomitant]
     Active Substance: METOPROLOL TARTRATE
  10. INFLIXIMAB [Concomitant]
     Active Substance: INFLIXIMAB
  11. URSODIOL [Concomitant]
     Active Substance: URSODIOL
  12. ISAVUCONAZOLE [Concomitant]
     Active Substance: ISAVUCONAZOLE
  13. MIDODRINE [Concomitant]
     Active Substance: MIDODRINE
  14. FLUDRICORTISONE [Concomitant]
  15. OXYBUTYNIN [Concomitant]
     Active Substance: OXYBUTYNIN
  16. BASILIXIMAB [Concomitant]
     Active Substance: BASILIXIMAB
  17. TAMSULOSIN [Concomitant]
     Active Substance: TAMSULOSIN
  18. TRAZODONE [Concomitant]
     Active Substance: TRAZODONE HYDROCHLORIDE

REACTIONS (5)
  - Toxicity to various agents [None]
  - Tremor [None]
  - Confusional state [None]
  - Mental status changes [None]
  - Flat affect [None]

NARRATIVE: CASE EVENT DATE: 20211004
